FAERS Safety Report 19443053 (Version 2)
Quarter: 2021Q3

REPORT INFORMATION
  Report Type: Spontaneous
  Country: DE (occurrence: DE)
  Receive Date: 20210621
  Receipt Date: 20210810
  Transmission Date: 20211014
  Serious: Yes (Other)
  Sender: FDA-Public Use
  Company Number: DE-BIOGEN-2021BI01022478

PATIENT
  Age: 55 Year
  Sex: Male

DRUGS (2)
  1. COMIRNATY [Concomitant]
     Active Substance: TOZINAMERAN
     Indication: PRODUCT USED FOR UNKNOWN INDICATION
     Route: 065
  2. SPINRAZA [Suspect]
     Active Substance: NUSINERSEN
     Indication: SPINAL MUSCULAR ATROPHY
     Route: 037

REACTIONS (5)
  - Hypertension [Unknown]
  - Seizure [Unknown]
  - Pallor [Unknown]
  - Muscular weakness [Unknown]
  - Post lumbar puncture syndrome [Unknown]

NARRATIVE: CASE EVENT DATE: 202104
